FAERS Safety Report 19653162 (Version 6)
Quarter: 2022Q1

REPORT INFORMATION
  Report Type: Spontaneous
  Country: US (occurrence: US)
  Receive Date: 20210803
  Receipt Date: 20220114
  Transmission Date: 20220423
  Serious: Yes (Hospitalization, Other)
  Sender: FDA-Public Use
  Company Number: US-PFIZER INC-202100943690

PATIENT
  Age: 68 Year
  Sex: Male
  Weight: 97.506 kg

DRUGS (1)
  1. VYNDAMAX [Suspect]
     Active Substance: TAFAMIDIS
     Indication: Amyloidosis
     Dosage: 61 MG, DAILY
     Route: 048
     Dates: start: 202104

REACTIONS (13)
  - Ulcer [Unknown]
  - Arthropathy [Unknown]
  - Fall [Unknown]
  - Dizziness [Unknown]
  - Limb injury [Unknown]
  - Condition aggravated [Unknown]
  - Back disorder [Unknown]
  - Arthralgia [Unknown]
  - Gait disturbance [Unknown]
  - Blood glucose decreased [Unknown]
  - Body mass index increased [Unknown]
  - Emotional disorder [Unknown]
  - Head injury [Unknown]
